FAERS Safety Report 16534088 (Version 2)
Quarter: 2019Q3

REPORT INFORMATION
  Report Type: Report from Study
  Country: BR (occurrence: BR)
  Receive Date: 20190705
  Receipt Date: 20190708
  Transmission Date: 20191004
  Serious: Yes (Hospitalization, Other)
  Sender: FDA-Public Use
  Company Number: BR-UCBSA-2019027274

PATIENT
  Age: 70 Year
  Sex: Female
  Weight: 63 kg

DRUGS (4)
  1. METOTREXATO [METHOTREXATE] [Concomitant]
     Active Substance: METHOTREXATE
     Indication: RHEUMATIC DISORDER
     Dosage: 25 MILLIGRAM, 9 TABLETS ON THURSDAYS
     Route: 048
     Dates: start: 2015
  2. CERTOLIZUMAB PEGOL [Suspect]
     Active Substance: CERTOLIZUMAB PEGOL
     Indication: RHEUMATOID ARTHRITIS
     Dosage: 400 MILLIGRAM, EV 15 DAYS
     Route: 058
     Dates: end: 201904
  3. FOLIC ACID. [Concomitant]
     Active Substance: FOLIC ACID
     Indication: VITAMIN SUPPLEMENTATION
     Dosage: 4 DAYS A WEEK
     Route: 048
     Dates: start: 2015
  4. DEFLAZACORTE [Concomitant]
     Active Substance: DEFLAZACORT
     Indication: ANTIINFLAMMATORY THERAPY
     Dosage: 6 MILLIGRAM, 2X/DAY (BID) IN COFFEE
     Route: 048
     Dates: start: 2015

REACTIONS (3)
  - Pulmonary mass [Recovering/Resolving]
  - Cardiac disorder [Recovering/Resolving]
  - Pneumonia [Recovering/Resolving]

NARRATIVE: CASE EVENT DATE: 201905
